FAERS Safety Report 9382443 (Version 1)
Quarter: 2013Q3

REPORT INFORMATION
  Report Type: Spontaneous
  Country: US (occurrence: US)
  Receive Date: 20130703
  Receipt Date: 20130703
  Transmission Date: 20140515
  Serious: No
  Sender: FDA-Public Use
  Company Number: US-UPSHER-SMITH LABORATORIES, INC.-12003308

PATIENT
  Sex: Female

DRUGS (2)
  1. DIVIGEL [Suspect]
     Indication: HOT FLUSH
     Dosage: UNK
     Route: 065
     Dates: start: 20121029, end: 20121119
  2. NOT REPORTED [Concomitant]

REACTIONS (1)
  - Negative thoughts [Recovered/Resolved]
